FAERS Safety Report 9922796 (Version 2)
Quarter: 2014Q1

REPORT INFORMATION
  Report Type: Spontaneous
  Country: BR (occurrence: BR)
  Receive Date: 20140225
  Receipt Date: 20140225
  Transmission Date: 20141002
  Serious: Yes (Other)
  Sender: FDA-Public Use
  Company Number: BR-PFIZER INC-2014036694

PATIENT
  Sex: Female

DRUGS (3)
  1. XALATAN [Suspect]
     Indication: INTRAOCULAR PRESSURE INCREASED
     Dosage: MORE THAN 10 YEARS
  2. XALATAN [Suspect]
     Indication: GLAUCOMA
  3. AZOPT [Concomitant]
     Indication: GLAUCOMA

REACTIONS (6)
  - Glaucoma [Unknown]
  - Eye irritation [Recovered/Resolved]
  - Anxiety [Unknown]
  - Arthropathy [Not Recovered/Not Resolved]
  - Gait disturbance [Not Recovered/Not Resolved]
  - Spinal disorder [Not Recovered/Not Resolved]
